FAERS Safety Report 14433287 (Version 3)
Quarter: 2019Q1

REPORT INFORMATION
  Report Type: Spontaneous
  Country: US (occurrence: US)
  Receive Date: 20180124
  Receipt Date: 20190102
  Transmission Date: 20190417
  Serious: No
  Sender: FDA-Public Use
  Company Number: US-PCCINC-2017-PEL-003195

PATIENT

DRUGS (3)
  1. GABLOFEN [Suspect]
     Active Substance: BACLOFEN
     Dosage: 100 ?G, BOLUS
     Route: 037
  2. GABLOFEN [Suspect]
     Active Substance: BACLOFEN
     Indication: CEREBRAL PALSY
     Dosage: 449 ?G, QD
     Route: 037
  3. GABLOFEN [Suspect]
     Active Substance: BACLOFEN
     Indication: MUSCLE SPASTICITY
     Dosage: 350 ?G, QD
     Route: 037

REACTIONS (9)
  - Tachycardia [Recovered/Resolved]
  - Fall [Recovered/Resolved]
  - Withdrawal syndrome [Recovered/Resolved]
  - Somnolence [Recovered/Resolved]
  - Complication associated with device [Recovered/Resolved]
  - Pruritus [Recovered/Resolved]
  - Lethargy [Recovered/Resolved]
  - Hyperhidrosis [Recovered/Resolved]
  - Muscle spasticity [Recovered/Resolved]

NARRATIVE: CASE EVENT DATE: 20170922
